FAERS Safety Report 14655149 (Version 4)
Quarter: 2019Q4

REPORT INFORMATION
  Report Type: Spontaneous
  Country: US (occurrence: US)
  Receive Date: 20180319
  Receipt Date: 20191104
  Transmission Date: 20200122
  Serious: No
  Sender: FDA-Public Use
  Company Number: US-PFIZER INC-2017326516

PATIENT
  Age: 86 Year
  Sex: Female
  Weight: 77.11 kg

DRUGS (4)
  1. LYRICA [Suspect]
     Active Substance: PREGABALIN
     Indication: NERVE INJURY
     Dosage: 150 MG, 4X/DAY (TAKE 1 CAPSULE 4 TIMES DAILY)
     Route: 048
     Dates: start: 2017
  2. LYRICA [Suspect]
     Active Substance: PREGABALIN
     Dosage: 150 MG, FOUR TIMES A DAY
     Route: 048
     Dates: start: 20190301
  3. LYRICA [Suspect]
     Active Substance: PREGABALIN
     Indication: DIABETIC NEUROPATHY
     Dosage: 500 MG, UNK (MORNING, NOON AND EVENING)
     Route: 048
  4. LYRICA [Suspect]
     Active Substance: PREGABALIN
     Indication: PAIN IN EXTREMITY
     Dosage: UNK

REACTIONS (1)
  - No adverse event [Unknown]

NARRATIVE: CASE EVENT DATE: 2017
